FAERS Safety Report 6885390-2 (Version None)
Quarter: 2010Q3

REPORT INFORMATION
  Report Type: 
  Country: None (occurrence: None)
  Receive Date: 20100729
  Receipt Date: 20080219
  Transmission Date: 20110219
  Serious: Yes (Other)
  Sender: FDA-Public Use
  Company Number: US-PFIZER INC-2008012906

PATIENT
  Sex: Male

DRUGS (2)
  1. CELEBREX [Suspect]
     Indication: PAIN
     Route: 048
  2. CELEBREX [Suspect]
     Indication: ARTHRITIS

REACTIONS (4)
  - ABDOMINAL DISCOMFORT [None]
  - DIARRHOEA [None]
  - DRUG INEFFECTIVE [None]
  - MUSCLE SPASMS [None]
